FAERS Safety Report 5130851-X (Version None)
Quarter: 2006Q4

REPORT INFORMATION
  Report Type: 
  Country: None (occurrence: None)
  Receive Date: 20061013
  Receipt Date: 20061009
  Transmission Date: 20070319
  Serious: Yes (Death, Hospitalization, Disabling)
  Sender: FDA-Public Use
  Company Number: 163-20785-06081310

PATIENT
  Age: 51 Year
  Sex: Male

DRUGS (11)
  1. THALOMID [Suspect]
     Indication: PROSTATE CANCER METASTATIC
     Dosage: 200 MG, 1 IN 1 D, ORAL
     Route: 048
     Dates: start: 20060822, end: 20060908
  2. ASPIRIN [Concomitant]
  3. LOVENOX [Concomitant]
  4. NEXIUM [Concomitant]
  5. MS CONTIN [Concomitant]
  6. MS CONTIN [Concomitant]
  7. LYRICA [Concomitant]
  8. SENOKOT-S (TABLETS) [Concomitant]
  9. DULCOLAX (BISACODYL) (SUPPOSITORY) [Concomitant]
  10. EFFEXOR XR [Concomitant]
  11. METHADONE HCL [Concomitant]

REACTIONS (10)
  - DISEASE PROGRESSION [None]
  - DISORIENTATION [None]
  - FLUID INTAKE REDUCED [None]
  - HYPERKALAEMIA [None]
  - LETHARGY [None]
  - MULTI-ORGAN FAILURE [None]
  - ORAL INTAKE REDUCED [None]
  - PROSTATE CANCER [None]
  - RENAL FAILURE ACUTE [None]
  - SEDATION [None]
